FAERS Safety Report 18048012 (Version 1)
Quarter: 2020Q3

REPORT INFORMATION
  Report Type: Spontaneous
  Country: US (occurrence: US)
  Receive Date: 20200720
  Receipt Date: 20200720
  Transmission Date: 20201103
  Serious: Yes (Hospitalization)
  Sender: FDA-Public Use
  Company Number: None

PATIENT
  Age: 63 Year
  Sex: Female

DRUGS (3)
  1. COSENTYX [Suspect]
     Active Substance: SECUKINUMAB
     Indication: PALMOPLANTAR PUSTULOSIS
     Dosage: ?          OTHER FREQUENCY:Q4WKS ;?
     Route: 058
     Dates: start: 20190918
  2. MELOXICAM. [Concomitant]
     Active Substance: MELOXICAM
  3. APAP/COODEINE [Concomitant]

REACTIONS (3)
  - Limb injury [None]
  - Road traffic accident [None]
  - Therapy interrupted [None]

NARRATIVE: CASE EVENT DATE: 20200311
